FAERS Safety Report 25828914 (Version 1)
Quarter: 2025Q3

REPORT INFORMATION
  Report Type: Spontaneous
  Country: EU (occurrence: EU)
  Receive Date: 20250922
  Receipt Date: 20250922
  Transmission Date: 20251020
  Serious: Yes (Death, Other)
  Sender: BIOVITRUM
  Company Number: EU-BIOVITRUM-2025-DE-012844

PATIENT
  Sex: Male

DRUGS (1)
  1. KINERET [Suspect]
     Active Substance: ANAKINRA
     Indication: Product used for unknown indication

REACTIONS (1)
  - Death [Fatal]
